FAERS Safety Report 16457876 (Version 1)
Quarter: 2019Q2

REPORT INFORMATION
  Report Type: Spontaneous
  Country: FR (occurrence: FR)
  Receive Date: 20190620
  Receipt Date: 20190620
  Transmission Date: 20190711
  Serious: Yes (Hospitalization)
  Sender: FDA-Public Use
  Company Number: FR-PFIZER INC-2019262584

PATIENT
  Age: 68 Year
  Sex: Male
  Weight: 63 kg

DRUGS (6)
  1. LEVOFLOXACIN. [Suspect]
     Active Substance: LEVOFLOXACIN
     Indication: LUNG DISORDER
     Dosage: UNK
     Route: 042
     Dates: start: 20180623, end: 20180721
  2. ROCEPHINE [Suspect]
     Active Substance: CEFTRIAXONE SODIUM
     Indication: SEPSIS
     Dosage: UNK
     Route: 042
     Dates: start: 20180705, end: 20180716
  3. PANTOPRAZOLE [Suspect]
     Active Substance: PANTOPRAZOLE
     Indication: PROPHYLAXIS
     Dosage: 20 MILLIGRAM, QD
     Route: 048
     Dates: start: 20170701, end: 20180828
  4. ZITHROMAX [Suspect]
     Active Substance: AZITHROMYCIN DIHYDRATE
     Indication: LUNG DISORDER
     Dosage: UNK
     Route: 048
     Dates: start: 20180702, end: 20180705
  5. LASILIX [FUROSEMIDE] [Suspect]
     Active Substance: FUROSEMIDE
     Indication: PULMONARY FIBROSIS
     Dosage: 40 MILLIGRAM, QD
     Route: 055
     Dates: start: 20180701, end: 20180905
  6. FLAGYL [Suspect]
     Active Substance: METRONIDAZOLE\METRONIDAZOLE HYDROCHLORIDE
     Indication: SEPSIS
     Dosage: UNK
     Route: 042
     Dates: start: 20180705, end: 20180721

REACTIONS (3)
  - Mouth ulceration [Recovered/Resolved]
  - Cheilitis [Recovered/Resolved]
  - Dermatitis exfoliative generalised [Recovered/Resolved]

NARRATIVE: CASE EVENT DATE: 20180706
